FAERS Safety Report 25440130 (Version 1)
Quarter: 2025Q2

REPORT INFORMATION
  Report Type: Spontaneous
  Country: QA (occurrence: QA)
  Receive Date: 20250616
  Receipt Date: 20250616
  Transmission Date: 20250717
  Serious: Yes (Other)
  Sender: PFIZER
  Company Number: QA-PFIZER INC-202500119622

PATIENT
  Age: 60 Year
  Sex: Female

DRUGS (2)
  1. IBRANCE [Suspect]
     Active Substance: PALBOCICLIB
     Indication: Breast cancer female
     Dosage: 125 MG, DAILY
     Dates: start: 20210701
  2. LETROZOLE [Concomitant]
     Active Substance: LETROZOLE
     Dates: start: 20210701

REACTIONS (10)
  - Metastases to liver [Unknown]
  - Malignant neoplasm progression [Unknown]
  - Multiple sclerosis [Unknown]
  - Dyspnoea [Unknown]
  - Coronary artery disease [Unknown]
  - Osteolysis [Unknown]
  - Cough [Unknown]
  - Lung infiltration [Unknown]
  - Pyrexia [Unknown]
  - Fatigue [Unknown]

NARRATIVE: CASE EVENT DATE: 20210723
